FAERS Safety Report 6096320-8 (Version None)
Quarter: 2009Q1

REPORT INFORMATION
  Report Type: 
  Country: None (occurrence: None)
  Receive Date: 20090227
  Receipt Date: 20081112
  Transmission Date: 20090719
  Serious: No
  Sender: FDA-Public Use
  Company Number: A0755987A

PATIENT
  Age: 54 Year
  Sex: Male

DRUGS (6)
  1. LAMICTAL [Suspect]
     Indication: BIPOLAR DISORDER
     Dosage: 300MG PER DAY
     Route: 048
     Dates: start: 20080910, end: 20081104
  2. SYNTHROID [Concomitant]
  3. ZESTRIL [Concomitant]
  4. CELEBREX [Concomitant]
  5. UNKNOWN MEDICATION [Concomitant]
  6. PREVACID [Concomitant]

REACTIONS (4)
  - LOCAL SWELLING [None]
  - PRURITUS [None]
  - RASH [None]
  - SKIN WARM [None]
